FAERS Safety Report 23526910 (Version 1)
Quarter: 2024Q1

REPORT INFORMATION
  Report Type: Report from Study
  Country: CL (occurrence: CL)
  Receive Date: 20240215
  Receipt Date: 20240215
  Transmission Date: 20240410
  Serious: Yes (Hospitalization)
  Sender: FDA-Public Use
  Company Number: CL-JNJFOC-20240229378

PATIENT
  Age: 28 Year
  Sex: Female

DRUGS (1)
  1. SIMPONI [Suspect]
     Active Substance: GOLIMUMAB
     Indication: Psoriatic arthropathy
     Dosage: LAST DRUG APPLICATION: 2-JAN-2024
     Route: 058
     Dates: start: 20220902

REACTIONS (2)
  - Encephalitis autoimmune [Unknown]
  - Viral infection [Unknown]

NARRATIVE: CASE EVENT DATE: 20240101
